FAERS Safety Report 9157173 (Version 2)
Quarter: 2013Q2

REPORT INFORMATION
  Report Type: Spontaneous
  Country: US (occurrence: US)
  Receive Date: 20130312
  Receipt Date: 20130401
  Transmission Date: 20140414
  Serious: Yes (Hospitalization)
  Sender: FDA-Public Use
  Company Number: US-JNJFOC-20130216124

PATIENT
  Age: 46 Year
  Sex: Female

DRUGS (7)
  1. RISPERDAL CONSTA [Suspect]
     Indication: SCHIZOAFFECTIVE DISORDER
     Route: 030
     Dates: start: 201212, end: 20130215
  2. RISPERDAL [Suspect]
     Indication: SCHIZOAFFECTIVE DISORDER
     Route: 048
     Dates: start: 2007
  3. LITHIUM [Suspect]
     Indication: SCHIZOAFFECTIVE DISORDER
     Route: 065
     Dates: end: 2011
  4. DEPAKOTE [Concomitant]
     Indication: SCHIZOAFFECTIVE DISORDER
     Route: 065
  5. ABILIFY [Concomitant]
     Indication: SCHIZOAFFECTIVE DISORDER
     Route: 065
  6. WELLBUTRIN [Concomitant]
     Indication: SCHIZOAFFECTIVE DISORDER
     Route: 065
  7. COGENTIN [Concomitant]
     Route: 065

REACTIONS (3)
  - Schizoaffective disorder [Recovered/Resolved]
  - Renal impairment [Recovered/Resolved]
  - Drug dose omission [Not Recovered/Not Resolved]
